FAERS Safety Report 8585382-1 (Version None)
Quarter: 2012Q3

REPORT INFORMATION
  Report Type: 
  Country: None (occurrence: None)
  Receive Date: 20120810
  Receipt Date: 20120806
  Transmission Date: 20120928
  Serious: Yes (Other)
  Sender: FDA-Public Use
  Company Number: US-BAYER-2012-080793

PATIENT
  Sex: Male

DRUGS (3)
  1. ASPIRIN [Suspect]
     Indication: PROPHYLAXIS
     Dosage: DAILY DOSE 81 MG
     Dates: start: 20120301
  2. PLAVIX [Suspect]
     Dosage: DAILY DOSE 75 MG
     Route: 048
  3. PLAVIX [Suspect]
     Indication: PROPHYLAXIS
     Dosage: DAILY DOSE 75 MG
     Route: 048
     Dates: start: 20120320

REACTIONS (1)
  - RECTAL HAEMORRHAGE [None]
